FAERS Safety Report 9486896 (Version 3)
Quarter: 2013Q4

REPORT INFORMATION
  Report Type: Spontaneous
  Country: GB (occurrence: None)
  Receive Date: 20130823
  Receipt Date: 20131015
  Transmission Date: 20140711
  Serious: Yes (Other)
  Sender: FDA-Public Use
  Company Number: AUR-APL-2013-06772

PATIENT
  Age: 49 Year
  Sex: Female

DRUGS (3)
  1. RIBAVIRIN [Suspect]
     Indication: HEPATITIS C
     Dosage: TWICE DAILY, ORAL
     Route: 048
     Dates: start: 20121105
  2. PEGINTERFERON ALFA-2B [Suspect]
     Indication: HEPATITIS C
     Dosage: ONCE WEEKLY, SUBCUTANEOUS
     Route: 058
     Dates: start: 20121105
  3. TELAPREVIR [Suspect]
     Indication: HEPATITIS C
     Dosage: 2250 MG (750 MG,3 IN 1 D),ORAL STOPPED
     Route: 048
     Dates: start: 20121105, end: 20130114

REACTIONS (8)
  - Rectal haemorrhage [None]
  - Proctalgia [None]
  - Headache [None]
  - Nausea [None]
  - Pruritus [None]
  - Anaemia [None]
  - Rash [None]
  - Miliaria [None]
